FAERS Safety Report 13378312 (Version 1)
Quarter: 2017Q1

REPORT INFORMATION
  Report Type: Spontaneous
  Country: JP (occurrence: JP)
  Receive Date: 20170328
  Receipt Date: 20170328
  Transmission Date: 20170429
  Serious: Yes (Other)
  Sender: FDA-Public Use
  Company Number: JP-TEVA-753221ROM

PATIENT
  Age: 66 Year
  Sex: Female

DRUGS (5)
  1. PACLITAXEL. [Concomitant]
     Active Substance: PACLITAXEL
     Indication: URETHRAL CANCER METASTATIC
     Dosage: 175 MG/M2 ON DAY 1; FIRST LINE THERAPY
     Route: 042
  2. CISPLATIN. [Suspect]
     Active Substance: CISPLATIN
     Indication: URETHRAL CANCER METASTATIC
     Dosage: 25 MG/M2 ON DAY 1 TO 3; FIRST LINE THERAPY
     Route: 042
  3. PACLITAXEL. [Concomitant]
     Active Substance: PACLITAXEL
     Indication: URETHRAL CANCER METASTATIC
     Dosage: SECOND LINE THERAPY; 3 COURSES
     Route: 065
  4. CARBOPLATIN. [Suspect]
     Active Substance: CARBOPLATIN
     Indication: URETHRAL CANCER METASTATIC
     Dosage: SECOND LINE THERAPY; 3 COURSES
     Route: 065
  5. IFOSFAMIDE. [Concomitant]
     Active Substance: IFOSFAMIDE
     Indication: URETHRAL CANCER METASTATIC
     Dosage: 1200 MG/M2 ON DAY 1 TO 3; FIRST LINE THERAPY
     Route: 042

REACTIONS (1)
  - Inappropriate antidiuretic hormone secretion [Recovered/Resolved]
